FAERS Safety Report 6286933-2 (Version None)
Quarter: 2009Q3

REPORT INFORMATION
  Report Type: 
  Country: None (occurrence: None)
  Receive Date: 20090728
  Receipt Date: 20090714
  Transmission Date: 20100115
  Serious: Yes (Life-Threatening)
  Sender: FDA-Public Use
  Company Number: RS-MYLANLABS-2009S1012366

PATIENT
  Age: 11 Year
  Sex: Male

DRUGS (5)
  1. FENTANYL-100 [Suspect]
     Indication: GENERAL ANAESTHESIA
  2. THIOPENTAL SODIUM [Concomitant]
     Indication: INDUCTION OF ANAESTHESIA
  3. SUCCINYLCHOLINE CHLORIDE [Concomitant]
     Indication: INDUCTION OF ANAESTHESIA
  4. ENTONOX [Concomitant]
  5. VECURONIUM BROMIDE [Concomitant]
     Indication: GENERAL ANAESTHESIA

REACTIONS (1)
  - ANAPHYLACTIC SHOCK [None]
